FAERS Safety Report 16130004 (Version 1)
Quarter: 2019Q1

REPORT INFORMATION
  Report Type: Spontaneous
  Country: IT (occurrence: GB)
  Receive Date: 20190328
  Receipt Date: 20190328
  Transmission Date: 20190418
  Serious: Yes (Other)
  Sender: FDA-Public Use
  Company Number: IT-IPSEN BIOPHARMACEUTICALS, INC.-2019-04838

PATIENT
  Age: 71 Year
  Sex: Male

DRUGS (4)
  1. LORAZEPAM. [Concomitant]
     Active Substance: LORAZEPAM
     Indication: DYSTONIA
  2. BOTULINUM TOXIN TYPE A NOS [Suspect]
     Active Substance: BOTULINUM TOXIN TYPE A
     Indication: OFF LABEL USE
  3. TRIHEXYPHENIDYL [Concomitant]
     Active Substance: TRIHEXYPHENIDYL
     Indication: DYSTONIA
  4. BOTULINUM TOXIN TYPE A NOS [Suspect]
     Active Substance: BOTULINUM TOXIN TYPE A
     Indication: DYSTONIA
     Dosage: 495 UNITS (250 U LEFT SEMISPINALIS CAPITIS (SC), 150 U LEFT LEVATOR SCAPULAE (LS), 75 U RIGHT STERNO
     Route: 030

REACTIONS (2)
  - Radiculitis brachial [Recovering/Resolving]
  - Off label use [Unknown]
